FAERS Safety Report 22073311 (Version 17)
Quarter: 2024Q4

REPORT INFORMATION
  Report Type: Report from Study
  Country: US (occurrence: US)
  Receive Date: 20230308
  Receipt Date: 20241122
  Transmission Date: 20250115
  Serious: Yes (Hospitalization, Other)
  Sender: UCB
  Company Number: US-UCBSA-2022065522

PATIENT
  Age: 33 Year
  Sex: Female
  Weight: 58.5 kg

DRUGS (25)
  1. FINTEPLA [Suspect]
     Active Substance: FENFLURAMINE
     Indication: Lennox-Gastaut syndrome
     Dosage: 2.5 MILLILITER, 2X/DAY (BID)
     Route: 048
     Dates: start: 20221021
  2. FINTEPLA [Suspect]
     Active Substance: FENFLURAMINE
     Dosage: 15.4 MILLIGRAM/DAY, 7.7 MG/KG/DAY
     Route: 048
     Dates: start: 20221214
  3. FINTEPLA [Suspect]
     Active Substance: FENFLURAMINE
     Dosage: 3.5 MILLILITER, 2X/DAY (BID)
     Route: 048
  4. FINTEPLA [Suspect]
     Active Substance: FENFLURAMINE
     Dosage: 4 MILLILITER, 2X/DAY (BID)
     Route: 048
  5. FINTEPLA [Suspect]
     Active Substance: FENFLURAMINE
     Dosage: 2.5 MILLILITER, 2X/DAY (BID)
     Route: 048
  6. FINTEPLA [Suspect]
     Active Substance: FENFLURAMINE
     Dosage: 4 MILLILITER, 2X/DAY (BID)
     Route: 048
  7. FINTEPLA [Suspect]
     Active Substance: FENFLURAMINE
     Dosage: 3.5 MILLILITER, 2X/DAY (BID)
     Route: 048
     Dates: start: 2023
  8. FINTEPLA [Suspect]
     Active Substance: FENFLURAMINE
     Dosage: 3.5 MILLILITER, 2X/DAY (BID)
     Route: 048
  9. FINTEPLA [Suspect]
     Active Substance: FENFLURAMINE
     Dosage: 3.5 MILLILITER, 2X/DAY (BID)
     Route: 048
  10. FINTEPLA [Suspect]
     Active Substance: FENFLURAMINE
     Dosage: 17.6 MILLIGRAM/DAY, 8.8 MG/KG/DAY
     Route: 048
     Dates: start: 20230112
  11. FINTEPLA [Suspect]
     Active Substance: FENFLURAMINE
     Dosage: 15.4 MILLIGRAM/DAY, 7.7 MG/KG/DAY
     Route: 048
     Dates: start: 20230825
  12. FINTEPLA [Suspect]
     Active Substance: FENFLURAMINE
     Dosage: 3.5 MILLILITER, 2X/DAY (BID)
     Route: 048
  13. FINTEPLA [Suspect]
     Active Substance: FENFLURAMINE
     Dosage: 3.5 MILLILITER, 2X/DAY (BID)
     Route: 048
  14. FINTEPLA [Suspect]
     Active Substance: FENFLURAMINE
     Dosage: 3.50 MILLILITER, 2X/DAY (BID)
     Route: 048
  15. FINTEPLA [Suspect]
     Active Substance: FENFLURAMINE
     Dosage: 3.50 MILLILITER, 2X/DAY (BID)
     Route: 048
  16. FINTEPLA [Suspect]
     Active Substance: FENFLURAMINE
     Dosage: 3.5 MILLILITER, 2X/DAY (BID)
     Route: 048
  17. KEPPRA XR [Suspect]
     Active Substance: LEVETIRACETAM
     Indication: Epilepsy
     Dosage: 750 MILLIGRAM, ONCE DAILY (QD) NIGTHLY
     Route: 048
     Dates: start: 202303
  18. BRIVIACT [Suspect]
     Active Substance: BRIVARACETAM
     Indication: Product used for unknown indication
     Dosage: UNK
  19. DILANTIN [Suspect]
     Active Substance: PHENYTOIN
     Indication: Seizure
     Dosage: 130/100/100 MILLIGRAM, 3X/DAY (TID)
     Route: 048
  20. VALIUM [Concomitant]
     Active Substance: DIAZEPAM
     Indication: Product used for unknown indication
     Dosage: UNK
  21. EPIDIOLEX [Concomitant]
     Active Substance: CANNABIDIOL
     Indication: Lennox-Gastaut syndrome
     Dosage: 4.7 MILLILITER, 2X/DAY (BID)
     Route: 048
  22. CLOBAZAM [Concomitant]
     Active Substance: CLOBAZAM
     Indication: Product used for unknown indication
     Dosage: UNK
  23. VALPROATE [Concomitant]
     Active Substance: VALPROIC ACID
     Indication: Product used for unknown indication
     Dosage: UNK
  24. CANNABIDIOL [Concomitant]
     Active Substance: CANNABIDIOL
     Indication: Product used for unknown indication
     Dosage: UNK
  25. DESVENLAFAXINE [Concomitant]
     Active Substance: DESVENLAFAXINE
     Indication: Product used for unknown indication
     Dosage: UNK

REACTIONS (24)
  - Pericardial effusion [Not Recovered/Not Resolved]
  - Seizure cluster [Recovered/Resolved]
  - Seizure [Recovered/Resolved]
  - Urinary retention [Recovered/Resolved]
  - Hallucination, auditory [Not Recovered/Not Resolved]
  - Schizophrenia [Not Recovered/Not Resolved]
  - Anuria [Recovering/Resolving]
  - Aspiration [Not Recovered/Not Resolved]
  - Weight increased [Unknown]
  - Behaviour disorder [Unknown]
  - Weight decreased [Unknown]
  - Diarrhoea [Not Recovered/Not Resolved]
  - Hypersomnia [Recovered/Resolved]
  - Back pain [Recovered/Resolved]
  - Dry skin [Recovered/Resolved]
  - Anger [Not Recovered/Not Resolved]
  - Screaming [Not Recovered/Not Resolved]
  - Blood pressure decreased [Recovering/Resolving]
  - Adverse drug reaction [Not Recovered/Not Resolved]
  - Micturition urgency [Recovering/Resolving]
  - Tremor [Not Recovered/Not Resolved]
  - Agitation [Recovering/Resolving]
  - Obsessive-compulsive disorder [Recovering/Resolving]
  - Insomnia [Recovering/Resolving]

NARRATIVE: CASE EVENT DATE: 20221001
